FAERS Safety Report 10262843 (Version 2)
Quarter: 2014Q2

REPORT INFORMATION
  Report Type: Report from Study
  Country: US (occurrence: US)
  Receive Date: 20140626
  Receipt Date: 20140626
  Transmission Date: 20141212
  Serious: Yes (Death)
  Sender: FDA-Public Use
  Company Number: US-MYLANLABS-2013S1019050

PATIENT
  Age: 64 Year
  Sex: Male
  Weight: 84.82 kg

DRUGS (13)
  1. CLOZAPINE TABLETS [Suspect]
     Route: 048
     Dates: end: 2013
  2. CLOZAPINE TABLETS [Suspect]
     Dates: end: 2013
  3. LACTULOSE [Concomitant]
  4. METFORMIN [Concomitant]
  5. RANITIDINE [Concomitant]
  6. FERROUS SULFATE [Concomitant]
  7. ASA [Concomitant]
  8. ADVAIR [Concomitant]
  9. DICLOFENAC [Concomitant]
  10. DUONEB [Concomitant]
  11. SIMVASTATIN [Concomitant]
  12. VITAMIN D [Concomitant]
  13. PREDNISONE [Concomitant]

REACTIONS (1)
  - Pneumonia [Fatal]
